FAERS Safety Report 25498204 (Version 1)
Quarter: 2025Q3

REPORT INFORMATION
  Report Type: Spontaneous
  Country: EU (occurrence: EU)
  Receive Date: 20250701
  Receipt Date: 20250701
  Transmission Date: 20251020
  Serious: Yes (Life-Threatening)
  Sender: AUROBINDO
  Company Number: EU-AFSSAPS-RE2025000560

PATIENT
  Age: 18 Year
  Sex: Male
  Weight: 122 kg

DRUGS (15)
  1. FOLIC ACID [Suspect]
     Active Substance: FOLIC ACID
     Indication: Vitamin supplementation
     Dosage: 5 MILLIGRAM, ONCE A DAY
     Route: 048
     Dates: start: 20250601
  2. OMEPRAZOLE [Suspect]
     Active Substance: OMEPRAZOLE
     Indication: Prophylaxis against gastrointestinal ulcer
     Dosage: 40 MILLIGRAM, ONCE A DAY
     Route: 048
     Dates: start: 20250601
  3. SERTRALINE HYDROCHLORIDE [Suspect]
     Active Substance: SERTRALINE HYDROCHLORIDE
     Indication: Depression
     Dosage: 75 MILLIGRAM, ONCE A DAY
     Route: 048
     Dates: start: 20250601
  4. METHYLPREDNISOLONE [Suspect]
     Active Substance: METHYLPREDNISOLONE
     Indication: Inflammation
     Dosage: 50 MILLIGRAM, ONCE A DAY
     Route: 042
     Dates: start: 20250601, end: 20250604
  5. CRESEMBA [Suspect]
     Active Substance: ISAVUCONAZONIUM SULFATE
     Indication: Fungal infection
     Dosage: 300 MILLIGRAM, ONCE A DAY
     Route: 048
     Dates: start: 20250602
  6. CAPOTEN [Suspect]
     Active Substance: CAPTOPRIL
     Indication: Hypertension
     Dosage: 75 MILLIGRAM, ONCE A DAY
     Route: 048
     Dates: start: 20250601
  7. LEVOTHYROXINE [Suspect]
     Active Substance: LEVOTHYROXINE
     Indication: Hypothyroidism
     Dosage: 150 MICROGRAM, ONCE A DAY
     Route: 048
     Dates: start: 20250601
  8. RUXOLITINIB [Suspect]
     Active Substance: RUXOLITINIB
     Indication: Chemotherapy
     Dosage: 20 MILLIGRAM, ONCE A DAY
     Route: 048
     Dates: start: 20250601
  9. COTRIMOXAZOLE [Suspect]
     Active Substance: SULFAMETHOXAZOLE\TRIMETHOPRIM
     Indication: Infection
     Dosage: 1 DOSAGE FORM, EVERY OTHER DAY
     Route: 048
     Dates: start: 20250601
  10. METHYLPREDNISOLONE SODIUM SUCCINATE [Suspect]
     Active Substance: METHYLPREDNISOLONE SODIUM SUCCINATE
     Indication: Inflammation
     Dosage: 30 MILLIGRAM, ONCE A DAY
     Route: 048
     Dates: start: 20250601
  11. PIPERACILLIN SODIUM\TAZOBACTAM SODIUM [Suspect]
     Active Substance: PIPERACILLIN SODIUM\TAZOBACTAM SODIUM
     Indication: Inflammation
     Dosage: 4 GRAM, ONCE A DAY
     Route: 042
     Dates: start: 20250601, end: 20250607
  12. NALBUPHINE HYDROCHLORIDE [Concomitant]
     Active Substance: NALBUPHINE HYDROCHLORIDE
     Indication: Product used for unknown indication
     Route: 065
  13. AMLODIPINE [Concomitant]
     Active Substance: AMLODIPINE BESYLATE
     Indication: Product used for unknown indication
     Route: 065
  14. ZITHROMAX [Concomitant]
     Active Substance: AZITHROMYCIN DIHYDRATE
     Indication: Product used for unknown indication
     Route: 065
  15. BUSPIRONE [Concomitant]
     Active Substance: BUSPIRONE HYDROCHLORIDE
     Indication: Product used for unknown indication
     Route: 065

REACTIONS (3)
  - Gamma-glutamyltransferase increased [Not Recovered/Not Resolved]
  - Condition aggravated [Not Recovered/Not Resolved]
  - Drug level above therapeutic [Recovered/Resolved]

NARRATIVE: CASE EVENT DATE: 20250601
